FAERS Safety Report 4339490-1 (Version None)
Quarter: 2004Q2

REPORT INFORMATION
  Report Type: 
  Country: None (occurrence: None)
  Receive Date: 20040415
  Receipt Date: 20040326
  Transmission Date: 20050107
  Serious: Yes (Hospitalization, Disabling)
  Sender: FDA-Public Use
  Company Number: BE-ROCHE-362843

PATIENT
  Age: 64 Year
  Sex: Female
  Weight: 77.5 kg

DRUGS (3)
  1. CAPECITABINE [Suspect]
     Dosage: ACTUAL DOSAGE GIVEN AT LAST ADMINISTRATION: 4000MG.  CUMULATIVE DOSE GIVEN SINCE FIRST ADMINISTRATI+
     Route: 065
     Dates: start: 20040229, end: 20040322
  2. CPT 11 [Suspect]
     Dosage: ACTUAL DOSAGE GIVEN AT LAST ADMINISTRATION: 494MG.  CUMULATIVE DOSE GIVEN SINCE FIRST ADMINISTRATIO+
     Route: 065
     Dates: start: 20040224, end: 20040316
  3. CELECOXIB [Suspect]
     Dosage: ACTUAL DOSAGE GIVEN AT LAST ADMINISTRATION: 800MG.  CUMULATIVE DOSE GIVEN SINCE FIRST ADMINISTRATIO+
     Route: 065
     Dates: start: 20040224, end: 20040322

REACTIONS (7)
  - ANAEMIA [None]
  - ANOREXIA [None]
  - DIARRHOEA [None]
  - GASTRIC ULCER [None]
  - MELAENA [None]
  - REFLUX OESOPHAGITIS [None]
  - VOMITING [None]
